FAERS Safety Report 23039655 (Version 1)
Quarter: 2023Q4

REPORT INFORMATION
  Report Type: Spontaneous
  Country: CN (occurrence: CN)
  Receive Date: 20231006
  Receipt Date: 20231006
  Transmission Date: 20240109
  Serious: Yes (Hospitalization)
  Sender: FDA-Public Use
  Company Number: CN-ELI_LILLY_AND_COMPANY-CN202309016882

PATIENT
  Age: 66 Year
  Sex: Female
  Weight: 70 kg

DRUGS (1)
  1. INSULIN LISPRO [Suspect]
     Active Substance: INSULIN LISPRO
     Indication: Diabetes mellitus
     Dosage: 0.5 INTERNATIONAL UNIT, DAILY
     Route: 058
     Dates: start: 20230916, end: 20230917

REACTIONS (4)
  - Anaphylactic reaction [Unknown]
  - Abscess limb [Unknown]
  - Diabetes mellitus inadequate control [Unknown]
  - Septic shock [Unknown]

NARRATIVE: CASE EVENT DATE: 20230917
